FAERS Safety Report 8093177-0 (Version None)
Quarter: 2012Q1

REPORT INFORMATION
  Report Type: 
  Country: None (occurrence: None)
  Receive Date: 20120128
  Receipt Date: 20111012
  Transmission Date: 20120608
  Serious: No
  Sender: FDA-Public Use
  Company Number: US-ABBOTT-11P-163-0847947-00

PATIENT
  Age: 12 Year
  Sex: Male

DRUGS (1)
  1. HUMIRA [Suspect]
     Indication: CROHN'S DISEASE
     Dosage: LOADING DOSE ON 02 AUG 2011; INTERRUPTED
     Route: 058
     Dates: start: 20110802, end: 20110816

REACTIONS (2)
  - THERAPY REGIMEN CHANGED [None]
  - TUBERCULIN TEST POSITIVE [None]
